FAERS Safety Report 4840328-4 (Version None)
Quarter: 2005Q4

REPORT INFORMATION
  Report Type: 
  Country: None (occurrence: None)
  Receive Date: 20051031
  Receipt Date: 20050728
  Transmission Date: 20060501
  Serious: No
  Sender: FDA-Public Use
  Company Number: 200515815US

PATIENT
  Age: 40 Year
  Sex: Female

DRUGS (2)
  1. KETEK [Suspect]
     Indication: SINUSITIS
     Dosage: PO
     Route: 048
     Dates: start: 20050715, end: 20050715
  2. DECONGESTANT (OTC) [Concomitant]

REACTIONS (5)
  - HEADACHE [None]
  - HYPERHIDROSIS [None]
  - PARAESTHESIA [None]
  - VERTIGO [None]
  - VISION BLURRED [None]
